FAERS Safety Report 6125332-0 (Version None)
Quarter: 2009Q1

REPORT INFORMATION
  Report Type: 
  Country: None (occurrence: None)
  Receive Date: 20090317
  Receipt Date: 20090306
  Transmission Date: 20090719
  Serious: Yes (Hospitalization)
  Sender: FDA-Public Use
  Company Number: GXKR2009IT03011

PATIENT
  Sex: Female

DRUGS (1)
  1. AMOXICILLIN-CLAVULANIC ACID (NGX)(AMOXICILLIN, CLAVULANATE) [Suspect]

REACTIONS (1)
  - EXTRAPYRAMIDAL DISORDER [None]
